FAERS Safety Report 6989164-3 (Version None)
Quarter: 2010Q3

REPORT INFORMATION
  Report Type: 
  Country: None (occurrence: None)
  Receive Date: 20100916
  Receipt Date: 20090917
  Transmission Date: 20110219
  Serious: Yes (Other)
  Sender: FDA-Public Use
  Company Number: ZA-PFIZER INC-2009270754

PATIENT
  Age: 51 Year
  Sex: Female

DRUGS (4)
  1. LYRICA [Suspect]
     Dosage: 75 MG, 1X/DAY
     Route: 048
     Dates: start: 20090911, end: 20090911
  2. SIMVASTATIN [Concomitant]
     Dosage: UNK
     Route: 048
  3. PERINDOPRIL ERBUMINE/INDAPAMIDE HEMIHYDRATE [Concomitant]
     Dosage: UNK
     Route: 048
  4. DROSPIRENONE/ESTRADIOL [Concomitant]
     Dosage: UNK
     Route: 048

REACTIONS (3)
  - DYSPNOEA [None]
  - HYPERTENSION [None]
  - PANIC ATTACK [None]
